FAERS Safety Report 4714364-2 (Version None)
Quarter: 2005Q3

REPORT INFORMATION
  Report Type: 
  Country: None (occurrence: None)
  Receive Date: 20050714
  Receipt Date: 20050617
  Transmission Date: 20060218
  Serious: Yes (Hospitalization)
  Sender: FDA-Public Use
  Company Number: PT-MERCK-0506USA02698

PATIENT
  Age: 6 Year
  Sex: Male

DRUGS (1)
  1. SINGULAIR [Suspect]
     Indication: ASTHMA
     Route: 048

REACTIONS (17)
  - ALLERGIC GRANULOMATOUS ANGIITIS [None]
  - ARTHRALGIA [None]
  - CARDIOMYOPATHY [None]
  - CHRONIC RESPIRATORY FAILURE [None]
  - CLUBBING [None]
  - CYANOSIS [None]
  - EOSINOPHILIA [None]
  - GLOMERULOSCLEROSIS [None]
  - HAEMATURIA [None]
  - HYPERGAMMAGLOBULINAEMIA [None]
  - HYPERTENSION [None]
  - LUNG INFILTRATION [None]
  - MALNUTRITION [None]
  - PROTEINURIA [None]
  - RED BLOOD CELL SEDIMENTATION RATE INCREASED [None]
  - RHEUMATOID FACTOR INCREASED [None]
  - SKIN NODULE [None]
